FAERS Safety Report 9811857 (Version 15)
Quarter: 2015Q3

REPORT INFORMATION
  Report Type: Spontaneous
  Country: US (occurrence: US)
  Receive Date: 20140110
  Receipt Date: 20150924
  Transmission Date: 20151125
  Serious: Yes (Hospitalization, Other)
  Sender: FDA-Public Use
  Company Number: US-SANOFI-AVENTIS-2013SA068361

PATIENT
  Age: 63 Year
  Sex: Male
  Weight: 98.4 kg

DRUGS (28)
  1. LIPITOR [Concomitant]
     Active Substance: ATORVASTATIN CALCIUM
  2. BUPROPION. [Concomitant]
     Active Substance: BUPROPION
  3. SYNTHROID [Concomitant]
     Active Substance: LEVOTHYROXINE SODIUM
     Route: 048
  4. ZINC OXIDE. [Concomitant]
     Active Substance: ZINC OXIDE
     Dosage: 20%   OINT?APPLY   SMALL   AMOUNT   TOPICALLY
     Route: 061
  5. TAMSULOSIN HYDROCHLORIDE. [Concomitant]
     Active Substance: TAMSULOSIN HYDROCHLORIDE
     Route: 048
  6. SERTRALINE HYDROCHLORIDE. [Concomitant]
     Active Substance: SERTRALINE HYDROCHLORIDE
     Route: 048
  7. ACETAMINOPHEN W/OXYCODONE [Concomitant]
     Active Substance: ACETAMINOPHEN\OXYCODONE HYDROCHLORIDE
     Route: 048
  8. ZOLOFT [Concomitant]
     Active Substance: SERTRALINE HYDROCHLORIDE
  9. OMEPRAZOLE. [Concomitant]
     Active Substance: OMEPRAZOLE
     Route: 048
  10. IRBESARTAN. [Concomitant]
     Active Substance: IRBESARTAN
     Dosage: 300MG TAB
     Route: 048
  11. IBUPROFEN. [Concomitant]
     Active Substance: IBUPROFEN
     Dosage: 600MG
     Route: 048
  12. AMLODIPINE [Concomitant]
     Active Substance: AMLODIPINE BESYLATE
     Route: 048
  13. LANTUS [Concomitant]
     Active Substance: INSULIN GLARGINE
     Dosage: DOSE:30 UNIT(S)
  14. URSODIOL. [Concomitant]
     Active Substance: URSODIOL
     Indication: CHOLELITHIASIS
     Dosage: 300MG
     Route: 048
  15. FENOFIBRATE. [Concomitant]
     Active Substance: FENOFIBRATE
     Route: 048
  16. NITROSTAT [Concomitant]
     Active Substance: NITROGLYCERIN
     Dosage: 0.4MG UNDER THE TONGUE EVERY 5 MINUTES AS NEEDED, UP TO THREE DOSES
     Route: 048
  17. ASPIRIN. [Concomitant]
     Active Substance: ASPIRIN
  18. ZOCOR [Concomitant]
     Active Substance: SIMVASTATIN
  19. PLAVIX [Suspect]
     Active Substance: CLOPIDOGREL BISULFATE
     Route: 065
     Dates: start: 20030702, end: 20110912
  20. COUMADIN [Concomitant]
     Active Substance: WARFARIN SODIUM
     Dates: start: 20110828
  21. BISOPROLOL [Concomitant]
     Active Substance: BISOPROLOL
     Route: 048
  22. METOPROLOL SUCCINATE. [Concomitant]
     Active Substance: METOPROLOL SUCCINATE
     Route: 048
  23. METOPROLOL TARTRATE. [Concomitant]
     Active Substance: METOPROLOL TARTRATE
     Route: 048
  24. TERBINAFINE HYDROCHLORIDE. [Concomitant]
     Active Substance: TERBINAFINE HYDROCHLORIDE
     Indication: INFECTION
     Dosage: 1%   CREAM  APPLY
     Route: 061
  25. GLYBURIDE. [Concomitant]
     Active Substance: GLYBURIDE
     Route: 048
  26. LISINOPRIL. [Concomitant]
     Active Substance: LISINOPRIL
     Route: 048
  27. CYCLOBENZAPRINE HYDROCHLORIDE. [Concomitant]
     Active Substance: CYCLOBENZAPRINE HYDROCHLORIDE
     Route: 048
  28. CRESTOR [Concomitant]
     Active Substance: ROSUVASTATIN CALCIUM
     Route: 048

REACTIONS (19)
  - Acute kidney injury [Recovered/Resolved]
  - Calculus ureteric [Unknown]
  - Deep vein thrombosis [Unknown]
  - Rectal haemorrhage [Unknown]
  - Fatigue [Unknown]
  - Gastrointestinal haemorrhage [Unknown]
  - Haemorrhagic anaemia [Unknown]
  - Thrombosis [Unknown]
  - Diarrhoea [Recovered/Resolved]
  - Asthenia [Unknown]
  - Pyrexia [Recovered/Resolved]
  - Bacteraemia [Unknown]
  - Monoparesis [Unknown]
  - Weight decreased [Unknown]
  - Asthenia [Unknown]
  - Hypophagia [Unknown]
  - Ulcer haemorrhage [Recovering/Resolving]
  - Hyponatraemia [Unknown]
  - Night sweats [Unknown]

NARRATIVE: CASE EVENT DATE: 2011
